FAERS Safety Report 6319522-1 (Version None)
Quarter: 2009Q3

REPORT INFORMATION
  Report Type: 
  Country: None (occurrence: None)
  Receive Date: 20090822
  Receipt Date: 20080915
  Transmission Date: 20100115
  Serious: No
  Sender: FDA-Public Use
  Company Number: US-ABBOTT-08P-163-0475739-00

PATIENT
  Sex: Male

DRUGS (5)
  1. NIASPAN [Suspect]
     Indication: BLOOD TRIGLYCERIDES INCREASED
     Dosage: AT BEDTIME
     Route: 048
     Dates: start: 20080904
  2. ASPIRIN [Concomitant]
     Indication: DRUG USE FOR UNKNOWN INDICATION
     Route: 048
  3. SIMVASTATIN [Concomitant]
     Indication: DRUG USE FOR UNKNOWN INDICATION
     Route: 048
  4. CYCLOSPORINE [Concomitant]
     Indication: HEART TRANSPLANT
  5. INSULIN [Concomitant]
     Indication: DRUG USE FOR UNKNOWN INDICATION
     Dosage: SLIDING SCALE

REACTIONS (2)
  - ABDOMINAL DISCOMFORT [None]
  - BLOOD GLUCOSE INCREASED [None]
